FAERS Safety Report 6110674-5 (Version None)
Quarter: 2009Q1

REPORT INFORMATION
  Report Type: 
  Country: None (occurrence: None)
  Receive Date: 20090304
  Receipt Date: 20090226
  Transmission Date: 20090719
  Serious: Yes (Other)
  Sender: FDA-Public Use
  Company Number: 200914561

PATIENT
  Age: 6 Year
  Sex: Female

DRUGS (4)
  1. VIVAGLOBIN [Suspect]
     Indication: IMMUNODEFICIENCY COMMON VARIABLE
     Dosage: 66 ML Q1W SC : 66 ML Q1W SC : 66 ML Q1W SC
     Route: 058
     Dates: start: 20081201, end: 20090101
  2. VIVAGLOBIN [Suspect]
     Indication: IMMUNODEFICIENCY COMMON VARIABLE
     Dosage: 66 ML Q1W SC : 66 ML Q1W SC : 66 ML Q1W SC
     Route: 058
     Dates: start: 20081201, end: 20090101
  3. VIVAGLOBIN [Suspect]
     Indication: IMMUNODEFICIENCY COMMON VARIABLE
     Dosage: 66 ML Q1W SC : 66 ML Q1W SC : 66 ML Q1W SC
     Route: 058
     Dates: start: 20080506
  4. VIVAGLOBIN [Suspect]

REACTIONS (8)
  - ACID FAST BACILLI INFECTION [None]
  - CULTURE WOUND POSITIVE [None]
  - INFUSION SITE CELLULITIS [None]
  - INFUSION SITE INDURATION [None]
  - INFUSION SITE INFECTION [None]
  - PRODUCT CONTAMINATION [None]
  - SKIN LESION [None]
  - WATER POLLUTION [None]
